FAERS Safety Report 5982596-1 (Version None)
Quarter: 2008Q4

REPORT INFORMATION
  Report Type: 
  Country: None (occurrence: None)
  Receive Date: 20081208
  Receipt Date: 20081201
  Transmission Date: 20090506
  Serious: Yes (Death, Hospitalization, Other)
  Sender: FDA-Public Use
  Company Number: PHHY2008FR30314

PATIENT

DRUGS (6)
  1. NEORAL [Suspect]
     Indication: GRAFT VERSUS HOST DISEASE
     Dosage: UNK
     Dates: start: 20071001, end: 20081213
  2. NEORAL [Suspect]
     Dosage: UNK
     Dates: start: 20080313, end: 20080323
  3. CERTICAN [Suspect]
     Dosage: UNK
     Dates: start: 20071221, end: 20080323
  4. PROGRAF [Concomitant]
     Dosage: UNK
     Dates: start: 20080122, end: 20080303
  5. MYFORTIC [Concomitant]
     Dosage: UNK
     Dates: start: 20080323
  6. CELLCEPT [Concomitant]
     Dosage: UNK
     Dates: start: 20080323

REACTIONS (20)
  - ACUTE GRAFT VERSUS HOST DISEASE IN INTESTINE [None]
  - ALANINE AMINOTRANSFERASE INCREASED [None]
  - ANAEMIA [None]
  - APHASIA [None]
  - ASPARTATE AMINOTRANSFERASE INCREASED [None]
  - ASPERGILLOSIS [None]
  - BLOOD BILIRUBIN INCREASED [None]
  - BLOOD CREATININE INCREASED [None]
  - BLOOD LACTATE DEHYDROGENASE INCREASED [None]
  - BRAIN ABSCESS [None]
  - ENTEROCOCCAL INFECTION [None]
  - EPSTEIN-BARR VIRUS INFECTION [None]
  - HAEMOLYTIC URAEMIC SYNDROME [None]
  - HAPTOGLOBIN DECREASED [None]
  - HEMIPARESIS [None]
  - LUMBAR PUNCTURE [None]
  - NUCLEAR MAGNETIC RESONANCE IMAGING ABNORMAL [None]
  - OPPORTUNISTIC INFECTION [None]
  - THROMBOTIC THROMBOCYTOPENIC PURPURA [None]
  - TRANSFUSION [None]
